FAERS Safety Report 19734972 (Version 2)
Quarter: 2021Q4

REPORT INFORMATION
  Report Type: Report from Study
  Country: US (occurrence: US)
  Receive Date: 20210823
  Receipt Date: 20211208
  Transmission Date: 20220303
  Serious: Yes (Disabling, Other)
  Sender: FDA-Public Use
  Company Number: US-SANOFI-00234543

PATIENT
  Age: 47 Year
  Sex: Female

DRUGS (1)
  1. TERIFLUNOMIDE [Suspect]
     Active Substance: TERIFLUNOMIDE
     Indication: Multiple sclerosis
     Dosage: 7 MG, QD
     Route: 048
     Dates: start: 20191015, end: 202107

REACTIONS (14)
  - Disability [Unknown]
  - Cervical vertebral fracture [Unknown]
  - Multiple sclerosis [Unknown]
  - Gait disturbance [Unknown]
  - Hemiparesis [Unknown]
  - Product dose omission issue [Unknown]
  - Gait disturbance [Not Recovered/Not Resolved]
  - Vitamin D decreased [Unknown]
  - Vitamin B complex deficiency [Unknown]
  - Movement disorder [Unknown]
  - Fall [Unknown]
  - Joint injury [Unknown]
  - Ligament sprain [Unknown]
  - COVID-19 [Unknown]

NARRATIVE: CASE EVENT DATE: 20200101
